FAERS Safety Report 7063212-7 (Version None)
Quarter: 2010Q4

REPORT INFORMATION
  Report Type: 
  Country: None (occurrence: None)
  Receive Date: 20101026
  Receipt Date: 20101022
  Transmission Date: 20110411
  Serious: Yes (Death)
  Sender: FDA-Public Use
  Company Number: ZW-ABBOTT-10P-190-0680373-00

PATIENT
  Sex: Male

DRUGS (6)
  1. ALUVIA TABLETS [Suspect]
     Indication: HIV INFECTION
     Route: 048
     Dates: start: 20100921, end: 20101014
  2. STAVUDINE [Concomitant]
     Indication: HIV INFECTION
     Dates: start: 20020630, end: 20100921
  3. LAMIVUDINE [Concomitant]
     Indication: HIV INFECTION
     Dates: start: 20020630, end: 20100921
  4. NEVIRAPINE [Concomitant]
     Indication: HIV INFECTION
     Dates: start: 20020630, end: 20100921
  5. ABACAVIR [Concomitant]
     Indication: HIV INFECTION
     Dates: start: 20100921, end: 20101014
  6. DIDANOSINE [Concomitant]
     Indication: HIV INFECTION
     Dates: start: 20100921, end: 20101014

REACTIONS (1)
  - DEATH [None]
